FAERS Safety Report 8077851-8 (Version None)
Quarter: 2012Q1

REPORT INFORMATION
  Report Type: 
  Country: None (occurrence: None)
  Receive Date: 20120127
  Receipt Date: 20120123
  Transmission Date: 20120608
  Serious: Yes (Death, Other)
  Sender: FDA-Public Use
  Company Number: BR-ELI_LILLY_AND_COMPANY-BR201110001295

PATIENT
  Sex: Female

DRUGS (3)
  1. ANTIDEPRESSANTS [Concomitant]
     Dosage: UNK, UNKNOWN
     Route: 065
  2. BYETTA [Suspect]
     Dosage: UNK, UNKNOWN
     Route: 065
  3. BYETTA [Suspect]
     Dosage: UNK, UNKNOWN
     Route: 065
     Dates: start: 20110101

REACTIONS (4)
  - COMPLETED SUICIDE [None]
  - OSTEOARTHRITIS [None]
  - HYPERTENSION [None]
  - NAUSEA [None]
